FAERS Safety Report 6835477-5 (Version None)
Quarter: 2010Q3

REPORT INFORMATION
  Report Type: 
  Country: None (occurrence: None)
  Receive Date: 20100713
  Receipt Date: 20100629
  Transmission Date: 20110219
  Serious: Yes (Other)
  Sender: FDA-Public Use
  Company Number: PHHY2010JP43736

PATIENT
  Sex: Female

DRUGS (2)
  1. FEMARA [Suspect]
     Route: 048
  2. ALFACALCIDOL [Concomitant]
     Dosage: UNK
     Route: 048

REACTIONS (4)
  - BLOOD URINE PRESENT [None]
  - CYSTITIS [None]
  - EPISTAXIS [None]
  - EYE HAEMORRHAGE [None]
